FAERS Safety Report 4365460-3 (Version None)
Quarter: 2004Q2

REPORT INFORMATION
  Report Type: 
  Country: None (occurrence: None)
  Receive Date: 20040526
  Receipt Date: 20040518
  Transmission Date: 20050107
  Serious: Yes (Hospitalization)
  Sender: FDA-Public Use
  Company Number: US-AMGEN-US077251

PATIENT
  Sex: Male

DRUGS (3)
  1. PROCRIT [Suspect]
     Indication: ANAEMIA
     Dates: start: 20031101, end: 20040301
  2. NEORECORMON [Suspect]
  3. COUMADIN [Concomitant]

REACTIONS (1)
  - HAEMORRHAGE [None]
